FAERS Safety Report 21554659 (Version 2)
Quarter: 2022Q4

REPORT INFORMATION
  Report Type: Spontaneous
  Country: US (occurrence: US)
  Receive Date: 20221104
  Receipt Date: 20221111
  Transmission Date: 20230113
  Serious: No
  Sender: FDA-Public Use
  Company Number: US-GSKCCFUS-Case-01541936_AE-87309

PATIENT
  Sex: Female

DRUGS (1)
  1. TRELEGY ELLIPTA [Suspect]
     Active Substance: FLUTICASONE FUROATE\UMECLIDINIUM BROMIDE\VILANTEROL TRIFENATATE
     Indication: Product used for unknown indication
     Dosage: UNK
     Dates: start: 202208

REACTIONS (5)
  - Cough [Unknown]
  - Productive cough [Unknown]
  - Condition aggravated [Unknown]
  - Drug ineffective [Unknown]
  - Product complaint [Unknown]
